FAERS Safety Report 23711685 (Version 1)
Quarter: 2024Q2

REPORT INFORMATION
  Report Type: Spontaneous
  Country: US (occurrence: None)
  Receive Date: 20240404
  Receipt Date: 20240404
  Transmission Date: 20240716
  Serious: No
  Sender: FDA-Public Use
  Company Number: None

PATIENT
  Age: 81 Year
  Sex: Female
  Weight: 78.11 kg

DRUGS (6)
  1. KISQALI [Suspect]
     Active Substance: RIBOCICLIB
     Indication: Breast cancer
     Dosage: 800 MG DAILY ORAL
     Route: 048
     Dates: start: 20210412, end: 20240403
  2. FOLIC ACID [Concomitant]
     Active Substance: FOLIC ACID
  3. FULVESTRANT [Concomitant]
     Active Substance: FULVESTRANT
  4. GABAPENTIN [Concomitant]
     Active Substance: GABAPENTIN
  5. GUAIFENESIN\PSEUDOEPHEDRINE HYDROCHLORIDE [Concomitant]
     Active Substance: GUAIFENESIN\PSEUDOEPHEDRINE HYDROCHLORIDE
  6. TIZANIDINE [Concomitant]
     Active Substance: TIZANIDINE

REACTIONS (4)
  - Drug ineffective [None]
  - Therapy cessation [None]
  - Breast cancer [None]
  - Neoplasm [None]

NARRATIVE: CASE EVENT DATE: 20240403
